FAERS Safety Report 5315607-7 (Version None)
Quarter: 2007Q2

REPORT INFORMATION
  Report Type: 
  Country: None (occurrence: None)
  Receive Date: 20070427
  Receipt Date: 20070413
  Transmission Date: 20071010
  Serious: Yes (Hospitalization)
  Sender: FDA-Public Use
  Company Number: 2007SP004909

PATIENT
  Age: 72 Year
  Sex: Female
  Weight: 60.9 kg

DRUGS (11)
  1. INTRON A [Suspect]
     Indication: METASTATIC RENAL CELL CARCINOMA
     Dosage: 3 MIU;TIW;SC
     Route: 058
     Dates: start: 20061009, end: 20070221
  2. SUTENT [Suspect]
     Indication: METASTATIC RENAL CELL CARCINOMA
     Dosage: 37.5 MG;QD;PO
     Route: 048
     Dates: start: 20061009, end: 20070221
  3. FERROUS SULFATE TAB [Concomitant]
  4. ACETYLSALICYLIC ACID SRT [Concomitant]
  5. DOCUSATE SODIUM [Concomitant]
  6. COMPAZINE [Concomitant]
  7. OMEGA 3 [Concomitant]
  8. CALTRATE + D [Concomitant]
  9. COENZYME Q10 [Concomitant]
  10. VITAMIN CAP [Concomitant]
  11. VITAMIN E [Concomitant]

REACTIONS (7)
  - HAEMOGLOBIN DECREASED [None]
  - HYPOCALCAEMIA [None]
  - HYPOGLYCAEMIA [None]
  - HYPOKALAEMIA [None]
  - SYNCOPE [None]
  - THROMBOCYTOPENIA [None]
  - VOMITING [None]
